FAERS Safety Report 18603697 (Version 5)
Quarter: 2021Q3

REPORT INFORMATION
  Report Type: Other
  Country: CA (occurrence: CA)
  Receive Date: 20201211
  Receipt Date: 20210722
  Transmission Date: 20211014
  Serious: Yes (Other)
  Sender: FDA-Public Use
  Company Number: CA-CELLTRION INC.-2020CA033358

PATIENT

DRUGS (16)
  1. ACTEMRA [Suspect]
     Active Substance: TOCILIZUMAB
     Indication: KIDNEY TRANSPLANT REJECTION
  2. MELATONIN [Concomitant]
     Active Substance: MELATONIN
  3. THYMOGLOBULIN [Concomitant]
     Active Substance: LAPINE T-LYMPHOCYTE IMMUNE GLOBULIN
     Indication: TRANSPLANT REJECTION
     Dosage: 60 MILLIGRAM
     Route: 065
  4. RITUXIMAB (UNKNOWN) [Suspect]
     Active Substance: RITUXIMAB
     Indication: TRANSPLANT REJECTION
     Route: 065
  5. ACTEMRA [Suspect]
     Active Substance: TOCILIZUMAB
     Indication: TRANSPLANT REJECTION
     Dosage: 270 MG, 1 EVERY 4 WEEKS
     Route: 042
  6. PREDNISONE. [Concomitant]
     Active Substance: PREDNISONE
  7. ACTEMRA [Suspect]
     Active Substance: TOCILIZUMAB
     Indication: TRANSPLANT REJECTION
     Dosage: 240.0 MILLIGRAM 1 EVERY 4 WEEKS
     Route: 042
  8. ADVAGRAF [Concomitant]
     Active Substance: TACROLIMUS
     Dosage: 1 EVERY 1 DAY
     Route: 065
  9. FERROUS SULFATE. [Concomitant]
     Active Substance: FERROUS SULFATE
  10. SEPTRA [Concomitant]
     Active Substance: SULFAMETHOXAZOLE\TRIMETHOPRIM
  11. SODIUM CHLORIDE. [Concomitant]
     Active Substance: SODIUM CHLORIDE
  12. IRON [Concomitant]
     Active Substance: IRON
  13. TACROLIMUS. [Concomitant]
     Active Substance: TACROLIMUS
     Dosage: 2 EVERY 1 DAY
     Route: 065
  14. METHYLPREDNISOLONE. [Concomitant]
     Active Substance: METHYLPREDNISOLONE
     Indication: TRANSPLANT REJECTION
     Route: 065
  15. ACTEMRA [Suspect]
     Active Substance: TOCILIZUMAB
     Indication: KIDNEY TRANSPLANT REJECTION
  16. CELLCEPT [Suspect]
     Active Substance: MYCOPHENOLATE MOFETIL\MYCOPHENOLATE MOFETIL HYDROCHLORIDE
     Indication: PRODUCT USED FOR UNKNOWN INDICATION
     Dosage: UNK
     Route: 065

REACTIONS (21)
  - Heart rate increased [Recovered/Resolved]
  - White blood cell count decreased [Recovered/Resolved]
  - Blood creatinine increased [Recovered/Resolved]
  - Blood pressure diastolic decreased [Recovered/Resolved]
  - Respiratory rate increased [Recovered/Resolved]
  - Injury [Recovered/Resolved]
  - Neutropenia [Recovered/Resolved]
  - Blood pressure diastolic abnormal [Recovered/Resolved]
  - Capillaritis [Recovered/Resolved]
  - Neoplasm [Recovered/Resolved]
  - Off label use [Recovered/Resolved]
  - Off label use [Unknown]
  - Blood pressure systolic decreased [Recovered/Resolved]
  - Glomerulonephritis [Recovered/Resolved]
  - Tubulointerstitial nephritis [Recovered/Resolved]
  - Headache [Recovered/Resolved]
  - Nasal congestion [Recovered/Resolved]
  - Nausea [Recovered/Resolved]
  - Vessel puncture site pain [Recovered/Resolved]
  - Cough [Recovered/Resolved]
  - Product use in unapproved indication [Recovered/Resolved]
